FAERS Safety Report 9204207 (Version 1)
Quarter: 2013Q2

REPORT INFORMATION
  Report Type: Report from Study
  Country: US (occurrence: US)
  Receive Date: 20130402
  Receipt Date: 20130402
  Transmission Date: 20140414
  Serious: Yes (Hospitalization)
  Sender: FDA-Public Use
  Company Number: US-PFIZER INC-2013100781

PATIENT
  Age: 80 Year
  Sex: Male

DRUGS (4)
  1. SPIRONOLACTONE [Suspect]
  2. BLINDED THERAPY [Suspect]
     Indication: TYPE 2 DIABETES MELLITUS
     Dosage: UNK
     Dates: start: 20111122
  3. INSULIN GLARGINE [Suspect]
     Indication: TYPE 2 DIABETES MELLITUS
     Dosage: 54 IU
  4. ASPIRIN [Concomitant]

REACTIONS (1)
  - Dehydration [Recovered/Resolved]
